FAERS Safety Report 6661620-7 (Version None)
Quarter: 2010Q1

REPORT INFORMATION
  Report Type: 
  Country: None (occurrence: None)
  Receive Date: 20100331
  Receipt Date: 20090302
  Transmission Date: 20100710
  Serious: Yes (Death)
  Sender: FDA-Public Use
  Company Number: US-BRISTOL-MYERS SQUIBB COMPANY-14526388

PATIENT
  Age: 6 Decade
  Sex: Male

DRUGS (2)
  1. ERBITUX [Suspect]
     Indication: COLORECTAL CANCER
  2. AVASTIN [Suspect]
     Indication: COLORECTAL CANCER

REACTIONS (1)
  - MALIGNANT NEOPLASM PROGRESSION [None]
